FAERS Safety Report 10499024 (Version 2)
Quarter: 2014Q4

REPORT INFORMATION
  Report Type: Spontaneous
  Country: US (occurrence: US)
  Receive Date: 20141006
  Receipt Date: 20141027
  Transmission Date: 20150528
  Serious: Yes (Hospitalization, Other)
  Sender: FDA-Public Use
  Company Number: US-GILEAD-2014-0117079

PATIENT
  Age: 64 Year
  Sex: Male
  Weight: 100.68 kg

DRUGS (8)
  1. EMTRICITABINE W/TENOFOVIR [Concomitant]
     Active Substance: EMTRICITABINE\TENOFOVIR DISOPROXIL
     Dosage: UNK
  2. METHADONE [Suspect]
     Active Substance: METHADONE HYDROCHLORIDE
     Dosage: 40 MG, UNK
     Route: 065
     Dates: start: 201408
  3. SOVALDI [Suspect]
     Active Substance: SOFOSBUVIR
     Indication: HEPATITIS C
     Dosage: 400 MG, QD
     Route: 048
     Dates: start: 20140807, end: 20140809
  4. OLYSIO [Suspect]
     Active Substance: SIMEPREVIR
     Indication: HEPATITIS C
     Dosage: 150 MG, QD
     Route: 048
     Dates: start: 20140807, end: 20140809
  5. OLYSIO [Suspect]
     Active Substance: SIMEPREVIR
     Dosage: 150 MG, QD
     Route: 048
     Dates: start: 20140830, end: 20140903
  6. METHADONE [Suspect]
     Active Substance: METHADONE HYDROCHLORIDE
     Indication: DRUG DEPENDENCE
     Dosage: 20 MG, UNK
     Route: 065
     Dates: end: 201408
  7. SOVALDI [Suspect]
     Active Substance: SOFOSBUVIR
     Dosage: 400 MG, QD
     Route: 048
     Dates: start: 20140830, end: 20140903
  8. DOLUTEGRAVIR [Concomitant]
     Active Substance: DOLUTEGRAVIR
     Dosage: UNK

REACTIONS (13)
  - Abdominal pain [Recovered/Resolved]
  - Drug level decreased [Unknown]
  - Hypotension [Recovered/Resolved]
  - Sinus bradycardia [Recovered/Resolved]
  - Drug intolerance [Unknown]
  - Drug interaction [Recovered/Resolved]
  - Nausea [Recovered/Resolved]
  - Palpitations [Unknown]
  - Off label use [Recovered/Resolved]
  - Drug withdrawal syndrome [Recovered/Resolved]
  - Vomiting [Recovered/Resolved]
  - Hypersensitivity [Recovered/Resolved]
  - Anxiety [Unknown]

NARRATIVE: CASE EVENT DATE: 201408
